FAERS Safety Report 6151165-5 (Version None)
Quarter: 2009Q2

REPORT INFORMATION
  Report Type: 
  Country: None (occurrence: None)
  Receive Date: 20090410
  Receipt Date: 20090327
  Transmission Date: 20091009
  Serious: Yes (Death)
  Sender: FDA-Public Use
  Company Number: KR-PFIZER INC-2009191376

PATIENT

DRUGS (9)
  1. VORICONAZOLE [Suspect]
     Indication: ASPERGILLOSIS
     Dosage: 400 MG, 2X/DAY
     Route: 048
     Dates: start: 20070614, end: 20070614
  2. VORICONAZOLE [Suspect]
     Dosage: 200 MG, 2X/DAY
     Dates: start: 20070615, end: 20070709
  3. CIPROFLOXACIN [Concomitant]
     Indication: SINUSITIS
     Dosage: 400 MG/DAY
     Route: 042
     Dates: start: 20070608, end: 20070628
  4. CIPROFLOXACIN [Concomitant]
     Dosage: 500 MG/DAY
     Route: 048
     Dates: start: 20070708, end: 20070709
  5. PIPERACILLIN [Concomitant]
     Indication: SINUSITIS
     Dosage: 13.5 MG/DAY
     Dates: start: 20070608, end: 20070628
  6. GABAPENTIN [Concomitant]
     Indication: POST HERPETIC NEURALGIA
     Dosage: 1800 MG/DAY
     Route: 048
     Dates: start: 20070521, end: 20070708
  7. ACETAMINOPHEN W/ CODEINE [Concomitant]
     Route: 048
     Dates: start: 20070622, end: 20070709
  8. MIRTAZAPINE [Concomitant]
     Indication: DEPRESSION
     Dosage: 7.5 MG/DAY
     Route: 048
     Dates: start: 20070628, end: 20070702
  9. CEFIXIME [Concomitant]
     Indication: SINUSITIS
     Dosage: 400 MG/DAY
     Route: 048
     Dates: start: 20070630, end: 20070707

REACTIONS (1)
  - RENAL FAILURE ACUTE [None]
